FAERS Safety Report 12987365 (Version 1)
Quarter: 2016Q4

REPORT INFORMATION
  Report Type: Spontaneous
  Country: US (occurrence: US)
  Receive Date: 20161130
  Receipt Date: 20161130
  Transmission Date: 20170207
  Serious: No
  Sender: FDA-Public Use
  Company Number: US-ASTRAZENECA-2016SF26551

PATIENT
  Age: 77 Year
  Sex: Female

DRUGS (1)
  1. RHINOCORT [Suspect]
     Active Substance: BUDESONIDE
     Indication: SINUS CONGESTION
     Dosage: 2 SPRAYS ONCE ON THE RIGHT NOSTRIL
     Route: 045
     Dates: start: 20161121

REACTIONS (3)
  - Epistaxis [Unknown]
  - Nasal discomfort [Unknown]
  - Oral discomfort [Unknown]

NARRATIVE: CASE EVENT DATE: 20161121
